FAERS Safety Report 8765978 (Version 1)
Quarter: 2012Q4

REPORT INFORMATION
  Report Type: 
  Country: JP (occurrence: JP)
  Receive Date: 20120904
  Receipt Date: 20120904
  Transmission Date: 20130627
  Serious: Yes (Other)
  Sender: FDA-Public Use
  Company Number: JP-009507513-1206USA01321

PATIENT

DRUGS (4)
  1. ZOLINZA [Suspect]
     Indication: MYCOSIS FUNGOIDES
     Dosage: 400 mg, qd
     Route: 048
     Dates: start: 20120105, end: 20120112
  2. ZOLINZA [Suspect]
     Dosage: 300 mg, qd
     Route: 048
     Dates: start: 20120113, end: 20120119
  3. ZOLINZA [Suspect]
     Dosage: 400 mg, qd
     Route: 048
     Dates: start: 20120120, end: 20120209
  4. ZOLINZA [Suspect]
     Dosage: 300 mg, qd
     Route: 048
     Dates: start: 20120210, end: 20120223

REACTIONS (3)
  - Hepatic function abnormal [Recovering/Resolving]
  - Dysgeusia [Unknown]
  - Hypercreatinaemia [Recovered/Resolved]
